FAERS Safety Report 4394911-3 (Version None)
Quarter: 2004Q3

REPORT INFORMATION
  Report Type: 
  Country: None (occurrence: None)
  Receive Date: 20040712
  Receipt Date: 20040610
  Transmission Date: 20050211
  Serious: Yes (Hospitalization, Other)
  Sender: FDA-Public Use
  Company Number: US-GLAXOSMITHKLINE-A0514152A

PATIENT
  Age: 46 Year
  Sex: Male
  Weight: 96.4 kg

DRUGS (14)
  1. AUGMENTIN '125' [Suspect]
     Indication: SINUSITIS
     Dosage: 1TAB PER DAY
     Route: 048
     Dates: start: 20040506, end: 20040525
  2. VIREAD [Concomitant]
     Indication: HIV INFECTION
  3. INVIRASE [Concomitant]
  4. FUZEON [Concomitant]
  5. RESCRIPTOR [Concomitant]
  6. LEVOXYL [Concomitant]
  7. AVANDIA [Concomitant]
  8. ACYCLOVIR [Concomitant]
  9. INSULIN [Concomitant]
  10. LISINOPRIL [Concomitant]
  11. ASPIRIN [Concomitant]
  12. TRICOR [Concomitant]
  13. ALPRAZOLAM [Concomitant]
  14. EMTRIVA [Concomitant]

REACTIONS (7)
  - CHILLS [None]
  - DYSPNOEA [None]
  - FATIGUE [None]
  - HAEMOGLOBIN DECREASED [None]
  - LYMPHADENOPATHY [None]
  - PYREXIA [None]
  - SINUSITIS [None]
